FAERS Safety Report 12611644 (Version 2)
Quarter: 2016Q3

REPORT INFORMATION
  Report Type: Report from Study
  Country: ES (occurrence: ES)
  Receive Date: 20160801
  Receipt Date: 20160817
  Transmission Date: 20161109
  Serious: Yes (Death, Life-Threatening, Other)
  Sender: FDA-Public Use
  Company Number: ES-ABBVIE-16K-144-1689239-00

PATIENT
  Age: 79 Year
  Sex: Female

DRUGS (1)
  1. DUODOPA [Suspect]
     Active Substance: CARBIDOPA\LEVODOPA
     Indication: PARKINSON^S DISEASE
     Dosage: PURGING: 3ML; MD: 12ML; CD: 10ML/H; ED: 4ML/H
     Route: 050
     Dates: start: 20120903

REACTIONS (7)
  - Death [Fatal]
  - Device related infection [Unknown]
  - Malnutrition [Unknown]
  - Decreased appetite [Unknown]
  - Diabetes mellitus [Unknown]
  - Parkinson^s disease [Unknown]
  - Weight decreased [Not Recovered/Not Resolved]

NARRATIVE: CASE EVENT DATE: 201209
